FAERS Safety Report 16363670 (Version 5)
Quarter: 2019Q3

REPORT INFORMATION
  Report Type: Report from Study
  Country: DE (occurrence: DE)
  Receive Date: 20190528
  Receipt Date: 20190716
  Transmission Date: 20191004
  Serious: Yes (Death, Life-Threatening, Hospitalization)
  Sender: FDA-Public Use
  Company Number: PHHO2019DE005398

PATIENT
  Age: 62 Year
  Sex: Male
  Weight: 71.4 kg

DRUGS (36)
  1. GRANISETRON [Concomitant]
     Active Substance: GRANISETRON
     Indication: PROPHYLAXIS
     Dosage: UNK
     Route: 065
     Dates: start: 20190509
  2. METAMIZOLE [Concomitant]
     Active Substance: METAMIZOLE
     Indication: ABDOMINAL PAIN
     Dosage: UNK
     Route: 065
     Dates: start: 20190515
  3. ETOMIDATE. [Concomitant]
     Active Substance: ETOMIDATE
     Indication: DYSPNOEA
     Dosage: UNK
     Route: 065
     Dates: start: 20190521
  4. CGP 41251 [Suspect]
     Active Substance: MIDOSTAURIN
     Indication: ACUTE MYELOID LEUKAEMIA
     Dosage: 50 MG, BID
     Route: 048
     Dates: start: 20190508, end: 20190520
  5. COMPARATOR IDARUBICIN [Suspect]
     Active Substance: IDARUBICIN
     Indication: ACUTE MYELOID LEUKAEMIA
     Dosage: 12 MG/M2, QD
     Route: 042
     Dates: start: 20190430
  6. COMPARATOR CYTARABINE [Suspect]
     Active Substance: CYTARABINE
     Indication: ACUTE MYELOID LEUKAEMIA
     Dosage: 200 MG/M2, CONT
     Route: 042
     Dates: start: 20190430
  7. MEROPENEM. [Concomitant]
     Active Substance: MEROPENEM
     Indication: ACUTE MYELOID LEUKAEMIA
  8. FILGRASTIM [Concomitant]
     Active Substance: FILGRASTIM
     Indication: NEUTROPENIA
     Dosage: 480 UG, QD
     Route: 065
  9. FILGRASTIM [Concomitant]
     Active Substance: FILGRASTIM
     Indication: GRANULOCYTE-COLONY STIMULATING FACTOR LEVEL NORMAL
  10. PANTOPRAZOL [Concomitant]
     Active Substance: PANTOPRAZOLE SODIUM
     Indication: GASTRITIS
  11. LYRICA [Concomitant]
     Active Substance: PREGABALIN
     Indication: MUSCULOSKELETAL PAIN
     Dosage: 50 MG, BID
     Route: 065
  12. MORPHIN [Concomitant]
     Active Substance: MORPHINE
     Indication: DYSPNOEA
     Dosage: UNK
     Route: 065
     Dates: start: 20190521
  13. MEROPENEM. [Concomitant]
     Active Substance: MEROPENEM
     Indication: FEBRILE NEUTROPENIA
     Dosage: UNK
     Route: 065
     Dates: start: 20190514
  14. MEROPENEM. [Concomitant]
     Active Substance: MEROPENEM
     Indication: ANTIBIOTIC THERAPY
  15. NOXAFIL [Concomitant]
     Active Substance: POSACONAZOLE
     Indication: PROPHYLAXIS
     Dosage: UNK
     Route: 065
     Dates: start: 20190430
  16. ORTOTON [Concomitant]
     Indication: MUSCULOSKELETAL PAIN
     Dosage: 750 MG, QD
     Route: 048
  17. METHOCABAL [Concomitant]
     Indication: PROPHYLAXIS
     Dosage: UNK
     Route: 065
  18. STEROFUNDIN [Concomitant]
     Active Substance: CALCIUM CHLORIDE\MAGNESIUM CHLORIDE\POTASSIUM CHLORIDE\SODIUM ACETATE\SODIUM CHLORIDE
     Indication: SUPPLEMENTATION THERAPY
     Dosage: 1000 ML, QD
     Route: 065
     Dates: start: 20190430
  19. METRONIDAZOL [Concomitant]
     Active Substance: METRONIDAZOLE
     Indication: FEBRILE NEUTROPENIA
     Dosage: 500 MG, TID
     Route: 065
  20. METRONIDAZOL [Concomitant]
     Active Substance: METRONIDAZOLE
     Indication: ANTIBIOTIC THERAPY
  21. ACICLOVIR [Concomitant]
     Active Substance: ACYCLOVIR
     Indication: PROPHYLAXIS
  22. FUROSEMID [Concomitant]
     Active Substance: FUROSEMIDE
     Indication: DIURETIC THERAPY
     Dosage: UNK
     Route: 042
     Dates: start: 20190430, end: 20190511
  23. TILIDIN [Concomitant]
     Active Substance: NALOXONE HYDROCHLORIDE\TILIDINE HYDROCHLORIDE
     Indication: MUSCULOSKELETAL PAIN
     Dosage: 100 MG
     Route: 048
  24. ACICLOVIR [Concomitant]
     Active Substance: ACYCLOVIR
     Indication: ANTIVIRAL PROPHYLAXIS
     Dosage: UNK
     Route: 065
     Dates: start: 20190430
  25. PANTOPRAZOL [Concomitant]
     Active Substance: PANTOPRAZOLE SODIUM
     Indication: PROPHYLAXIS
     Dosage: UNK
     Route: 065
     Dates: start: 20190430
  26. NOVAMIN(PROCHLORPERAZINE MALEATE) [Concomitant]
     Active Substance: PROCHLORPERAZINE MALEATE
     Indication: ABDOMINAL PAIN
     Dosage: 1000 TID
     Route: 065
  27. TAZOBAC [Concomitant]
     Active Substance: PIPERACILLIN SODIUM\TAZOBACTAM SODIUM
     Indication: PROPHYLAXIS
     Dosage: UNK
     Route: 065
     Dates: start: 20190511, end: 20190514
  28. METAMIZOLE [Concomitant]
     Active Substance: METAMIZOLE
     Indication: COLITIS
  29. GRANISETRON [Concomitant]
     Active Substance: GRANISETRON
     Indication: NAUSEA
  30. PREGABALIN. [Concomitant]
     Active Substance: PREGABALIN
     Indication: MUSCULOSKELETAL PAIN
     Dosage: UNK
     Route: 065
  31. FENTANYL. [Concomitant]
     Active Substance: FENTANYL
     Indication: DYSPNOEA
     Dosage: UNK
     Route: 065
     Dates: start: 20190521
  32. FUROSEMID [Concomitant]
     Active Substance: FUROSEMIDE
     Indication: OEDEMA
  33. KEVATRIL [Concomitant]
     Active Substance: GRANISETRON HYDROCHLORIDE
     Indication: PROPHYLAXIS
     Dosage: 1 MG, QD
     Route: 048
  34. MIDAZOLAM [Concomitant]
     Active Substance: MIDAZOLAM HYDROCHLORIDE
     Indication: DYSPNOEA
     Dosage: UNK
     Route: 065
     Dates: start: 20190521
  35. SUFENTANIL [Concomitant]
     Active Substance: SUFENTANIL
     Indication: DYSPNOEA
     Dosage: UNK
     Route: 065
     Dates: start: 20190521
  36. NATRIUMPICOSULFAT [Concomitant]
     Indication: CONSTIPATION
     Route: 065
     Dates: start: 20190506, end: 20190513

REACTIONS (1)
  - Pulmonary haemorrhage [Fatal]

NARRATIVE: CASE EVENT DATE: 20190519
